FAERS Safety Report 24862283 (Version 1)
Quarter: 2025Q1

REPORT INFORMATION
  Report Type: Spontaneous
  Country: EG (occurrence: EG)
  Receive Date: 20250120
  Receipt Date: 20250120
  Transmission Date: 20250409
  Serious: Yes (Other)
  Sender: HIKMA
  Company Number: EG-HIKMA PHARMACEUTICALS-EG-H14001-25-00444

PATIENT
  Age: 63 Year
  Sex: Male
  Weight: 80 kg

DRUGS (6)
  1. LEUCOVORIN CALCIUM [Suspect]
     Active Substance: LEUCOVORIN CALCIUM
     Indication: Oesophageal cancer metastatic
     Dosage: 280 MILLIGRAM, QOW, CYCLE 1 DAY 1
     Route: 041
     Dates: start: 20241028
  2. LEUCOVORIN CALCIUM [Suspect]
     Active Substance: LEUCOVORIN CALCIUM
     Dosage: 280 MILLIGRAM, QOW, CYCLE 2
     Route: 041
     Dates: start: 20241210
  3. OXALIPLATIN [Suspect]
     Active Substance: OXALIPLATIN
     Indication: Oesophageal cancer metastatic
     Dosage: 119 MILLIGRAM, QOW, CYCLE 1 DAY 1
     Route: 041
     Dates: start: 20241028
  4. OXALIPLATIN [Suspect]
     Active Substance: OXALIPLATIN
     Dosage: 119 MILLIGRAM, QOW, CYCLE 2
     Route: 041
     Dates: start: 20241210
  5. FLUOROURACIL [Suspect]
     Active Substance: FLUOROURACIL
     Indication: Oesophageal cancer metastatic
     Dosage: 1500 MILLIGRAM, QOW, OVER 44 HOURS, CYCLE 1 DAY 1
     Route: 041
     Dates: start: 20241028
  6. FLUOROURACIL [Suspect]
     Active Substance: FLUOROURACIL
     Dosage: 1500 MILLIGRAM, QOW, OVER 44 HOURS, CYCLE 2
     Route: 041
     Dates: start: 20241210

REACTIONS (2)
  - Thrombocytopenia [Recovered/Resolved]
  - Pyrexia [Recovered/Resolved]

NARRATIVE: CASE EVENT DATE: 20241224
